FAERS Safety Report 20310276 (Version 2)
Quarter: 2022Q1

REPORT INFORMATION
  Report Type: Spontaneous
  Country: CA (occurrence: CA)
  Receive Date: 20220107
  Receipt Date: 20220308
  Transmission Date: 20220423
  Serious: Yes (Other)
  Sender: FDA-Public Use
  Company Number: CA-PFIZER INC-202101876408

PATIENT
  Age: 64 Year
  Sex: Male
  Weight: 69 kg

DRUGS (3)
  1. RITUXIMAB [Suspect]
     Active Substance: RITUXIMAB
     Indication: Granulomatosis with polyangiitis
     Dosage: 500 MG
     Route: 042
  2. RITUXIMAB [Suspect]
     Active Substance: RITUXIMAB
     Dosage: 500 MG, 1 EVERY 6 MONTHS
     Route: 042
  3. RITUXIMAB [Concomitant]
     Active Substance: RITUXIMAB

REACTIONS (2)
  - Coronary artery disease [Recovered/Resolved]
  - Off label use [Unknown]
